FAERS Safety Report 11163782 (Version 1)
Quarter: 2015Q2

REPORT INFORMATION
  Report Type: Spontaneous
  Country: US (occurrence: US)
  Receive Date: 20150604
  Receipt Date: 20150604
  Transmission Date: 20150821
  Serious: No
  Sender: FDA-Public Use
  Company Number: US-SUN PHARMACEUTICAL INDUSTRIES LTD-2014SUN02839

PATIENT
  Age: 40 Year
  Sex: Male
  Weight: 115.65 kg

DRUGS (2)
  1. OXYCODONE HCL C-II TABS 5MG [Suspect]
     Active Substance: OXYCODONE HYDROCHLORIDE
     Indication: SPINAL FUSION SURGERY
     Dosage: 2/5 MG TABS 4 TIMS A DAY
     Route: 048
     Dates: start: 20141103, end: 20141204
  2. OXYCODONE HCL C-II TABS 5MG [Suspect]
     Active Substance: OXYCODONE HYDROCHLORIDE
     Indication: PAIN

REACTIONS (4)
  - Drug ineffective [Recovered/Resolved]
  - Insomnia [Recovered/Resolved]
  - Product substitution issue [Unknown]
  - Psychomotor hyperactivity [Recovered/Resolved]

NARRATIVE: CASE EVENT DATE: 20141103
